FAERS Safety Report 9890845 (Version 1)
Quarter: 2014Q1

REPORT INFORMATION
  Report Type: Spontaneous
  Country: CZ (occurrence: CZ)
  Receive Date: 20140212
  Receipt Date: 20140212
  Transmission Date: 20141002
  Serious: Yes (Other)
  Sender: FDA-Public Use
  Company Number: CZ-ASTELLAS-2014EU001131

PATIENT
  Sex: Female

DRUGS (2)
  1. PROTOPIC [Suspect]
     Indication: DERMATITIS ATOPIC
     Dosage: ONCE PER WEEK ON FACE AND NECK
     Route: 065
  2. PROTOPIC [Suspect]
     Indication: ECZEMA

REACTIONS (2)
  - Exposure during pregnancy [Unknown]
  - Prenatal screening test abnormal [Unknown]
